FAERS Safety Report 20045413 (Version 1)
Quarter: 2021Q4

REPORT INFORMATION
  Report Type: Spontaneous
  Country: US (occurrence: US)
  Receive Date: 20211108
  Receipt Date: 20211108
  Transmission Date: 20220303
  Serious: Yes (Other)
  Sender: FDA-Public Use
  Company Number: US-TRIS PHARMA, INC.-21US009953

PATIENT

DRUGS (3)
  1. MORPHINE SULFATE [Suspect]
     Active Substance: MORPHINE SULFATE
     Indication: Illness
     Dosage: 0.5 MILLILITRE, Q 4 HR
     Route: 060
     Dates: start: 202010
  2. GABAPENTIN [Concomitant]
     Active Substance: GABAPENTIN
     Indication: Product used for unknown indication
     Dosage: CAPSULES
     Dates: start: 2021
  3. GABAPENTIN [Concomitant]
     Active Substance: GABAPENTIN
     Dosage: ORAL SOLUTION
     Dates: end: 2021

REACTIONS (3)
  - Renal mass [Not Recovered/Not Resolved]
  - Incorrect route of product administration [Unknown]
  - Malaise [Not Recovered/Not Resolved]

NARRATIVE: CASE EVENT DATE: 20210101
